FAERS Safety Report 8169578-9 (Version None)
Quarter: 2012Q1

REPORT INFORMATION
  Report Type: 
  Country: None (occurrence: None)
  Receive Date: 20120228
  Receipt Date: 20120220
  Transmission Date: 20120608
  Serious: Yes (Other)
  Sender: FDA-Public Use
  Company Number: US-BAYER-2011-087317

PATIENT
  Sex: Female
  Weight: 113.38 kg

DRUGS (2)
  1. NAPROXEN [Concomitant]
     Dosage: UNK UNK, QD
     Dates: start: 20060101
  2. YASMIN [Suspect]
     Indication: CONTRACEPTION
     Dosage: UNK
     Dates: start: 20060201, end: 20070101

REACTIONS (4)
  - THROMBOPHLEBITIS [None]
  - EMOTIONAL DISTRESS [None]
  - PAIN IN EXTREMITY [None]
  - PAIN [None]
